FAERS Safety Report 22033519 (Version 1)
Quarter: 2023Q1

REPORT INFORMATION
  Report Type: Spontaneous
  Country: US (occurrence: US)
  Receive Date: 20230224
  Receipt Date: 20230224
  Transmission Date: 20230418
  Serious: Yes (Other)
  Sender: FDA-Public Use
  Company Number: US-GSKCCFUS-Case-01425163_AE-81899

PATIENT

DRUGS (4)
  1. NUCALA [Suspect]
     Active Substance: MEPOLIZUMAB
     Indication: Asthma
     Dosage: UNK ONCE A MONTH
     Dates: start: 202205
  2. AZELASTINE [Suspect]
     Active Substance: AZELASTINE
     Indication: Product used for unknown indication
     Dosage: UNK, BID TWICE A DAY NOW
  3. DEVICE [Concomitant]
     Active Substance: DEVICE
     Indication: Product used for unknown indication
     Dosage: UNK UNK, BID
  4. ADVAIR HFA [Concomitant]
     Active Substance: FLUTICASONE PROPIONATE\SALMETEROL XINAFOATE
     Indication: Product used for unknown indication
     Dosage: 100 UG, QD (100MCG INHALER AND TAKES IN MORNING)

REACTIONS (21)
  - Urinary retention [Unknown]
  - Upper-airway cough syndrome [Unknown]
  - Dry throat [Not Recovered/Not Resolved]
  - Nasal dryness [Unknown]
  - Increased upper airway secretion [Not Recovered/Not Resolved]
  - Oropharyngeal discomfort [Unknown]
  - Somnolence [Unknown]
  - Rhinorrhoea [Unknown]
  - Fatigue [Unknown]
  - Full blood count abnormal [Unknown]
  - Dry mouth [Not Recovered/Not Resolved]
  - Contusion [Unknown]
  - Injection site bruising [Unknown]
  - Limb operation [Unknown]
  - Pruritus [Recovering/Resolving]
  - Erythema [Recovering/Resolving]
  - Alopecia [Unknown]
  - Dehydration [Unknown]
  - Dysuria [Unknown]
  - Constipation [Unknown]
  - Sinus disorder [Unknown]

NARRATIVE: CASE EVENT DATE: 20220101
